FAERS Safety Report 7265642-7 (Version None)
Quarter: 2011Q1

REPORT INFORMATION
  Report Type: 
  Country: None (occurrence: None)
  Receive Date: 20110131
  Receipt Date: 20110126
  Transmission Date: 20110831
  Serious: Yes (Other)
  Sender: FDA-Public Use
  Company Number: US-ABBOTT-11P-163-0701113-00

PATIENT
  Sex: Female
  Weight: 83.99 kg

DRUGS (12)
  1. MEDICAL MARIJUANA [Concomitant]
     Indication: OSTEOARTHRITIS
  2. PAIN MEDICATION [Concomitant]
     Indication: OSTEOARTHRITIS
  3. CYMBALTA [Concomitant]
     Indication: ANXIETY
  4. OMEPRAZOLE [Concomitant]
     Indication: PRODUCT USED FOR UNKNOWN INDICATION
  5. HUMIRA [Suspect]
     Indication: RHEUMATOID ARTHRITIS
     Route: 058
     Dates: start: 20100301, end: 20101231
  6. HUMIRA [Suspect]
     Dosage: 1 DOSE OF HUMIRA PEN
     Route: 058
     Dates: start: 20101231, end: 20110103
  7. CYMBALTA [Concomitant]
     Indication: DEPRESSION
  8. TRAZODONE HCL [Concomitant]
     Indication: INSOMNIA
  9. LEVOTHYROXINE SODIUM [Concomitant]
     Indication: HYPOTHYROIDISM
  10. MEDICAL MARIJUANA [Concomitant]
     Indication: RHEUMATOID ARTHRITIS
  11. ESTRADIOL [Concomitant]
     Indication: MENOPAUSE
  12. PAIN MEDICATION [Concomitant]
     Indication: RHEUMATOID ARTHRITIS

REACTIONS (5)
  - RASH GENERALISED [None]
  - WHEEZING [None]
  - INJECTION SITE ERYTHEMA [None]
  - RESPIRATORY FAILURE [None]
  - DYSPNOEA [None]
